FAERS Safety Report 8346378-8 (Version None)
Quarter: 2012Q2

REPORT INFORMATION
  Report Type: 
  Country: None (occurrence: None)
  Receive Date: 20120509
  Receipt Date: 20120502
  Transmission Date: 20120825
  Serious: Yes (Other)
  Sender: FDA-Public Use
  Company Number: BR-US-EMD SERONO, INC.-7130236

PATIENT
  Sex: Female

DRUGS (1)
  1. REBIF [Suspect]
     Indication: RELAPSING-REMITTING MULTIPLE SCLEROSIS
     Dates: start: 20120312

REACTIONS (4)
  - INJECTION SITE ERYTHEMA [None]
  - HAEMATOCHEZIA [None]
  - INSOMNIA [None]
  - HYPERSENSITIVITY [None]
